FAERS Safety Report 12646606 (Version 1)
Quarter: 2016Q3

REPORT INFORMATION
  Report Type: Spontaneous
  Country: US (occurrence: US)
  Receive Date: 20160812
  Receipt Date: 20160812
  Transmission Date: 20161109
  Serious: Yes (Other)
  Sender: FDA-Public Use
  Company Number: US-009507513-1608USA001979

PATIENT
  Sex: Female
  Weight: 77.1 kg

DRUGS (8)
  1. ZOLOFT [Concomitant]
     Active Substance: SERTRALINE HYDROCHLORIDE
     Dosage: 100 MG, UNK
  2. TRAZODONE HYDROCHLORIDE. [Concomitant]
     Active Substance: TRAZODONE HYDROCHLORIDE
     Dosage: 50 MG, UNK
  3. METFORMIN [Concomitant]
     Active Substance: METFORMIN HYDROCHLORIDE
     Dosage: 500 MG, UNK
  4. PROTONIX [Concomitant]
     Active Substance: PANTOPRAZOLE SODIUM
     Dosage: 40 MG, UNK
  5. ALBUTEROL. [Concomitant]
     Active Substance: ALBUTEROL
     Dosage: INHALER
     Route: 055
  6. NEXPLANON [Suspect]
     Active Substance: ETONOGESTREL
     Indication: CONTRACEPTION
     Dosage: 3 YEAR IMPLANT IN LEFT ARM
     Route: 059
     Dates: start: 20160407
  7. LIPITOR [Concomitant]
     Active Substance: ATORVASTATIN CALCIUM
     Dosage: 400 MG, UNK
  8. LASIX [Concomitant]
     Active Substance: FUROSEMIDE
     Dosage: 10 MG, UNK

REACTIONS (8)
  - Migration of implanted drug [Not Recovered/Not Resolved]
  - Peripheral swelling [Unknown]
  - Back pain [Unknown]
  - Device breakage [Not Recovered/Not Resolved]
  - Dizziness [Unknown]
  - Stomach mass [Unknown]
  - Implant site pain [Unknown]
  - Pain in extremity [Unknown]

NARRATIVE: CASE EVENT DATE: 2016
